FAERS Safety Report 6402987-4 (Version None)
Quarter: 2009Q4

REPORT INFORMATION
  Report Type: 
  Country: None (occurrence: None)
  Receive Date: 20091013
  Receipt Date: 20090902
  Transmission Date: 20100525
  Serious: No
  Sender: FDA-Public Use
  Company Number: 2009BM000213

PATIENT
  Age: 5 Year
  Sex: Female
  Weight: 16.8 kg

DRUGS (2)
  1. KUVAN [Suspect]
     Indication: PHENYLKETONURIA
     Dosage: 45 MG/KG;QD;PO : 20 MG/KG;QD;PO
     Route: 048
     Dates: start: 20090103, end: 20090819
  2. KUVAN [Suspect]
     Indication: PHENYLKETONURIA
     Dosage: 45 MG/KG;QD;PO : 20 MG/KG;QD;PO
     Route: 048
     Dates: start: 20090820

REACTIONS (2)
  - ACCIDENTAL OVERDOSE [None]
  - PSYCHOMOTOR HYPERACTIVITY [None]
